FAERS Safety Report 12644055 (Version 2)
Quarter: 2017Q3

REPORT INFORMATION
  Report Type: Spontaneous
  Country: US (occurrence: US)
  Receive Date: 20160811
  Receipt Date: 20170912
  Transmission Date: 20171127
  Serious: Yes (Life-Threatening, Hospitalization, Other)
  Sender: FDA-Public Use
  Company Number: US-PFIZER INC-2016382205

PATIENT
  Age: 67 Year
  Sex: Female
  Weight: 122.4 kg

DRUGS (11)
  1. IRBESARTAN. [Concomitant]
     Active Substance: IRBESARTAN
     Indication: HYPERTENSION
     Dosage: 160 MG, 1X/DAY (EVERY MORNING)
  2. XELJANZ [Suspect]
     Active Substance: TOFACITINIB CITRATE
     Dosage: UNK
     Dates: start: 20170906
  3. LANTUS [Concomitant]
     Active Substance: INSULIN GLARGINE
     Dosage: 7 IU, 2X/DAY
  4. OXYCODONE [Concomitant]
     Active Substance: OXYCODONE
     Indication: BREAKTHROUGH PAIN
     Dosage: 10 MG, AS NEEDED (EVERY 4 HOURS)
  5. PREDNISONE. [Concomitant]
     Active Substance: PREDNISONE
     Indication: RHEUMATOID ARTHRITIS
     Dosage: 8 MG, 1X/DAY
  6. NEURONTIN [Concomitant]
     Active Substance: GABAPENTIN
     Indication: NEURALGIA
     Dosage: 600 MG, 4X/DAY
  7. MS CONTIN [Concomitant]
     Active Substance: MORPHINE SULFATE
     Indication: PAIN
     Dosage: 30 MG, 2X/DAY (EVERY 12 HOURS)
  8. XELJANZ [Suspect]
     Active Substance: TOFACITINIB CITRATE
     Dosage: UNK
     Dates: start: 20170718
  9. XELJANZ [Suspect]
     Active Substance: TOFACITINIB CITRATE
     Indication: RHEUMATOID ARTHRITIS
     Dosage: 5 MG, 2X/DAY
     Route: 048
  10. HUMALOG [Concomitant]
     Active Substance: INSULIN LISPRO
     Indication: DIABETES MELLITUS
     Dosage: 20 IU, 3X/DAY (BEFORE MEALS)
  11. LANTUS [Concomitant]
     Active Substance: INSULIN GLARGINE
     Indication: DIABETES MELLITUS
     Dosage: 14 IU, 1X/DAY (AT BEDTIME)

REACTIONS (18)
  - Pleural effusion [Recovering/Resolving]
  - Intervertebral disc degeneration [Unknown]
  - Fall [Unknown]
  - Muscle spasms [Not Recovered/Not Resolved]
  - Lumbar spinal stenosis [Unknown]
  - Gait disturbance [Not Recovered/Not Resolved]
  - Peroneal nerve palsy [Not Recovered/Not Resolved]
  - Body height decreased [Unknown]
  - Respiratory failure [Recovering/Resolving]
  - Post procedural infection [Recovering/Resolving]
  - Deafness [Unknown]
  - Paralysis [Unknown]
  - Herpes zoster [Recovering/Resolving]
  - Pain in extremity [Unknown]
  - Dysphagia [Unknown]
  - Mutism [Unknown]
  - Localised infection [Not Recovered/Not Resolved]
  - Pneumonia [Recovering/Resolving]

NARRATIVE: CASE EVENT DATE: 2015
